FAERS Safety Report 17323539 (Version 2)
Quarter: 2020Q1

REPORT INFORMATION
  Report Type: Report from Study
  Country: US (occurrence: US)
  Receive Date: 20200123
  Receipt Date: 20200323
  Transmission Date: 20200409
  Serious: Yes (Other)
  Sender: FDA-Public Use
  Company Number: US-THERAPEUTICSMD-2020TMD00159

PATIENT
  Sex: Female
  Weight: 92.97 kg

DRUGS (2)
  1. IMVEXXY [Suspect]
     Active Substance: ESTRADIOL
     Indication: VULVOVAGINAL DRYNESS
     Dosage: 10 ?G, 2X/WEEK IN THE MORNING
     Route: 067
     Dates: end: 201912
  2. BIJUVA [Suspect]
     Active Substance: ESTRADIOL\PROGESTERONE
     Indication: HYPERHIDROSIS
     Dosage: 1 CAPSULE, 1X/DAY
     Route: 048
     Dates: end: 201912

REACTIONS (6)
  - Kidney infection [Recovering/Resolving]
  - Urinary tract infection [Recovering/Resolving]
  - Pruritus [Recovered/Resolved]
  - Off label use [Recovered/Resolved]
  - Drug ineffective [Recovered/Resolved]
  - Rash [Recovered/Resolved]
